FAERS Safety Report 7530041-7 (Version None)
Quarter: 2011Q2

REPORT INFORMATION
  Report Type: 
  Country: None (occurrence: None)
  Receive Date: 20110607
  Receipt Date: 20110524
  Transmission Date: 20111010
  Serious: Yes (Hospitalization)
  Sender: FDA-Public Use
  Company Number: PHHY2011FR45620

PATIENT
  Sex: Female

DRUGS (1)
  1. GLEEVEC [Suspect]
     Indication: CHRONIC MYELOID LEUKAEMIA
     Dosage: 400 MG, QD
     Dates: start: 20031001

REACTIONS (4)
  - ABDOMINAL PAIN [None]
  - CYTOLYTIC HEPATITIS [None]
  - ABDOMINAL PAIN UPPER [None]
  - CHOLELITHIASIS [None]
